FAERS Safety Report 10929669 (Version 1)
Quarter: 2015Q1

REPORT INFORMATION
  Report Type: Spontaneous
  Country: BR (occurrence: BR)
  Receive Date: 20150319
  Receipt Date: 20150319
  Transmission Date: 20150721
  Serious: Yes (Other)
  Sender: FDA-Public Use
  Company Number: BR-PFIZER INC-2015091837

PATIENT
  Age: 57 Year
  Sex: Female

DRUGS (2)
  1. PRISTIQ EXTENDED RELEASE [Suspect]
     Active Substance: DESVENLAFAXINE SUCCINATE
     Indication: POLYNEUROPATHY
     Dosage: ONE UNIT (50 MG), DAILY
     Route: 048
     Dates: start: 20150304, end: 20150310
  2. MORPHINE [Concomitant]
     Active Substance: MORPHINE
     Indication: PAIN
     Dosage: UNSPECIFIED DOSE, THREE TIMES A DAY

REACTIONS (14)
  - Hearing impaired [Unknown]
  - Product use issue [Unknown]
  - Heart rate irregular [Unknown]
  - Suicidal ideation [Unknown]
  - Dizziness [Unknown]
  - Head discomfort [Unknown]
  - Nightmare [Unknown]
  - Malaise [Unknown]
  - Condition aggravated [Unknown]
  - Nausea [Unknown]
  - Blood pressure increased [Unknown]
  - Bedridden [Unknown]
  - Activities of daily living impaired [Unknown]
  - Pain [Unknown]

NARRATIVE: CASE EVENT DATE: 201503
